FAERS Safety Report 9006425 (Version 1)
Quarter: 2013Q1

REPORT INFORMATION
  Report Type: Spontaneous
  Country: GB (occurrence: GB)
  Receive Date: 20130110
  Receipt Date: 20130110
  Transmission Date: 20140127
  Serious: Yes (Other)
  Sender: FDA-Public Use
  Company Number: GB-JNJFOC-20130101530

PATIENT
  Age: 45 Year
  Sex: Female

DRUGS (1)
  1. INFLIXIMAB, RECOMBINANT [Suspect]
     Indication: PSORIASIS
     Dosage: INDUCTION REGIMEN OF 0, 2, 6 WEEKS
     Route: 042

REACTIONS (2)
  - Lupus-like syndrome [Recovering/Resolving]
  - Therapeutic response unexpected [Recovering/Resolving]
